FAERS Safety Report 8350957-1 (Version None)
Quarter: 2012Q2

REPORT INFORMATION
  Report Type: 
  Country: None (occurrence: None)
  Receive Date: 20120510
  Receipt Date: 20120427
  Transmission Date: 20120825
  Serious: Yes (Life-Threatening, Other)
  Sender: FDA-Public Use
  Company Number: FR-ELI_LILLY_AND_COMPANY-FR201111008747

PATIENT
  Sex: Female

DRUGS (4)
  1. ZYPREXA [Suspect]
     Indication: DEPRESSION
     Dosage: 5 MG, QD
     Route: 048
     Dates: start: 20110901, end: 20110928
  2. ESCITALOPRAM [Concomitant]
     Indication: DEPRESSION
     Dosage: 10 MG, QD
     Dates: start: 20110901
  3. ALPRAZOLAM [Concomitant]
     Indication: DEPRESSION
     Dosage: 0.25 MG, TID
     Dates: start: 20110901
  4. LEVONORGESTREL + ETHINYL ESTRADIOL [Concomitant]
     Dosage: 1 DF, QD
     Dates: start: 20110515, end: 20110906

REACTIONS (5)
  - OEDEMA PERIPHERAL [None]
  - ASCITES [None]
  - MACROCYTOSIS [None]
  - PULMONARY EMBOLISM [None]
  - WEIGHT INCREASED [None]
